FAERS Safety Report 4922754-8 (Version None)
Quarter: 2006Q1

REPORT INFORMATION
  Report Type: 
  Country: None (occurrence: None)
  Receive Date: 20060224
  Receipt Date: 20030605
  Transmission Date: 20060701
  Serious: Yes (Hospitalization)
  Sender: FDA-Public Use
  Company Number: US-MERCK-0306USA00844

PATIENT
  Age: 56 Year
  Sex: Female
  Weight: 91 kg

DRUGS (1)
  1. VIOXX [Suspect]
     Indication: ARTHRITIS
     Route: 048
     Dates: start: 20010101, end: 20011001

REACTIONS (14)
  - ANORECTAL DISORDER [None]
  - ARTHROPATHY [None]
  - BLOOD POTASSIUM DECREASED [None]
  - CARDIAC DISORDER [None]
  - DIVERTICULUM [None]
  - DYSPNOEA [None]
  - FATIGUE [None]
  - GOITRE [None]
  - HEADACHE [None]
  - HYPERTENSION [None]
  - MENOMETRORRHAGIA [None]
  - SWELLING [None]
  - UTERINE LEIOMYOMA [None]
  - VOCAL CORD NEOPLASM [None]
